FAERS Safety Report 9558272 (Version 2)
Quarter: 2014Q3

REPORT INFORMATION
  Report Type: Spontaneous
  Country: US (occurrence: US)
  Receive Date: 20130926
  Receipt Date: 20140815
  Transmission Date: 20150326
  Serious: Yes (Hospitalization, Other)
  Sender: FDA-Public Use
  Company Number: US-009507513-1309USA012092

PATIENT
  Sex: Female
  Weight: 73.92 kg

DRUGS (1)
  1. NUVARING [Suspect]
     Active Substance: ETHINYL ESTRADIOL\ETONOGESTREL
     Indication: CONTRACEPTION
     Dosage: UNK
     Route: 067
     Dates: start: 201108, end: 20111016

REACTIONS (5)
  - Iron deficiency anaemia [Unknown]
  - Menorrhagia [Unknown]
  - Pulmonary embolism [Unknown]
  - Packed red blood cell transfusion [Unknown]
  - Ileus [Recovered/Resolved]

NARRATIVE: CASE EVENT DATE: 201110
